FAERS Safety Report 13062494 (Version 2)
Quarter: 2016Q4

REPORT INFORMATION
  Report Type: Report from Study
  Country: US (occurrence: US)
  Receive Date: 20161226
  Receipt Date: 20161226
  Transmission Date: 20170207
  Serious: Yes (Other)
  Sender: FDA-Public Use
  Company Number: PHEH2016US033366

PATIENT
  Age: 65 Year
  Sex: Male

DRUGS (2)
  1. COSENTYX [Suspect]
     Active Substance: SECUKINUMAB
     Indication: PSORIASIS
     Dosage: 300 MG, QMO
     Route: 058
     Dates: start: 20160119
  2. TRAMADOL HYDROCHLORIDE TABLETS [Suspect]
     Active Substance: TRAMADOL HYDROCHLORIDE
     Indication: ANKLE FRACTURE
     Route: 065

REACTIONS (4)
  - Fall [Unknown]
  - Therapeutic response unexpected [Unknown]
  - Ankle fracture [Unknown]
  - Pruritus generalised [Recovered/Resolved]

NARRATIVE: CASE EVENT DATE: 20161207
